FAERS Safety Report 6741761-6 (Version None)
Quarter: 2010Q2

REPORT INFORMATION
  Report Type: 
  Country: None (occurrence: None)
  Receive Date: 20100526
  Receipt Date: 20100427
  Transmission Date: 20101027
  Serious: Yes (Other)
  Sender: FDA-Public Use
  Company Number: DE-ROCHE-695601

PATIENT
  Sex: Female

DRUGS (3)
  1. HERCEPTIN [Suspect]
     Route: 065
  2. HERCEPTIN [Suspect]
     Route: 065
  3. NAVELBINE [Concomitant]
     Dosage: 24 ADMINISTRATIONS

REACTIONS (3)
  - MALIGNANT NEOPLASM PROGRESSION [None]
  - OLIGOHYDRAMNIOS [None]
  - VAGINAL HAEMORRHAGE [None]
